FAERS Safety Report 26023831 (Version 2)
Quarter: 2025Q4

REPORT INFORMATION
  Report Type: Spontaneous
  Country: EU (occurrence: EU)
  Receive Date: 20251111
  Receipt Date: 20251208
  Transmission Date: 20260117
  Serious: Yes (Death)
  Sender: GILEAD
  Company Number: EU-GILEAD-2025-0735108

PATIENT
  Age: 67 Year
  Sex: Female

DRUGS (3)
  1. TRODELVY [Suspect]
     Active Substance: SACITUZUMAB GOVITECAN-HZIY
     Indication: HER2 positive breast cancer
     Dosage: UNK
     Route: 065
     Dates: start: 20251031
  2. ACETAMINOPHEN [Concomitant]
     Active Substance: ACETAMINOPHEN
     Indication: Premedication
  3. POLARAMINE [Concomitant]
     Active Substance: DEXCHLORPHENIRAMINE MALEATE
     Indication: Premedication

REACTIONS (2)
  - Perforation [Fatal]
  - Hypotension [Fatal]

NARRATIVE: CASE EVENT DATE: 20251031
